FAERS Safety Report 7092234-5 (Version None)
Quarter: 2010Q4

REPORT INFORMATION
  Report Type: 
  Country: None (occurrence: None)
  Receive Date: 20101109
  Receipt Date: 20101103
  Transmission Date: 20110411
  Serious: Yes (Hospitalization)
  Sender: FDA-Public Use
  Company Number: IT-ABBOTT-10P-083-0682948-00

PATIENT
  Sex: Male

DRUGS (3)
  1. KLACID [Suspect]
     Indication: TOOTH EXTRACTION
     Dosage: DAILY
     Route: 048
     Dates: start: 20101021, end: 20101026
  2. METHADONE HYDROCHLORIDE [Suspect]
     Indication: DRUG DEPENDENCE
     Dosage: DAILY
     Route: 048
     Dates: start: 20100701, end: 20101027
  3. FIDATO [Suspect]
     Indication: TOOTH EXTRACTION
     Dosage: DAILY
     Route: 030
     Dates: start: 20101021, end: 20101026

REACTIONS (3)
  - ABDOMINAL PAIN [None]
  - CONSTIPATION [None]
  - VOMITING [None]
